FAERS Safety Report 5905163-4 (Version None)
Quarter: 2008Q3

REPORT INFORMATION
  Report Type: 
  Country: None (occurrence: None)
  Receive Date: 20080909
  Receipt Date: 20080116
  Transmission Date: 20090109
  Serious: Yes (Hospitalization, Other)
  Sender: FDA-Public Use
  Company Number: 163-20785-07101482

PATIENT
  Age: 49 Year
  Sex: Female

DRUGS (3)
  1. THALOMID [Suspect]
     Indication: MULTIPLE MYELOMA
     Dosage: 200 MG, 1 IN 1 D, ORAL
     Route: 048
     Dates: start: 20070701
  2. WARFARIN SODIUM [Concomitant]
  3. DECADRON [Concomitant]

REACTIONS (4)
  - DEEP VEIN THROMBOSIS [None]
  - MALAISE [None]
  - PNEUMONIA [None]
  - RESPIRATORY TRACT CONGESTION [None]
